FAERS Safety Report 21076126 (Version 1)
Quarter: 2022Q3

REPORT INFORMATION
  Report Type: Spontaneous
  Country: None (occurrence: US)
  Receive Date: 20220713
  Receipt Date: 20220713
  Transmission Date: 20221027
  Serious: No
  Sender: FDA-Public Use
  Company Number: US-Mission Pharmacal Company-2130817

PATIENT
  Age: 31 Year
  Sex: Female

DRUGS (1)
  1. THIOLA EC [Suspect]
     Active Substance: TIOPRONIN
     Indication: Amino acid metabolism disorder
     Route: 048
     Dates: start: 20210507, end: 20220618

REACTIONS (1)
  - Drug ineffective [Unknown]
